FAERS Safety Report 17029569 (Version 1)
Quarter: 2019Q4

REPORT INFORMATION
  Report Type: Spontaneous
  Country: GB (occurrence: GB)
  Receive Date: 20191114
  Receipt Date: 20191114
  Transmission Date: 20200122
  Serious: Yes (Hospitalization, Other)
  Sender: FDA-Public Use
  Company Number: GB-SA-2019SA311097

PATIENT
  Age: 37 Year
  Sex: Female

DRUGS (20)
  1. DOCETAXEL. [Suspect]
     Active Substance: DOCETAXEL
     Indication: BREAST CANCER
     Dosage: 115 MG, Q3W
     Route: 042
     Dates: start: 20130628, end: 20130628
  2. DEXAMETHASONE. [Concomitant]
     Active Substance: DEXAMETHASONE
     Dosage: 8 MG, QD
     Route: 065
     Dates: start: 20130621, end: 20130626
  3. DEXAMETHASONE. [Concomitant]
     Active Substance: DEXAMETHASONE
     Dosage: UNK UNK, QD
     Route: 065
     Dates: start: 20130630, end: 20130702
  4. AMOXICILLIN. [Concomitant]
     Active Substance: AMOXICILLIN
     Dosage: UNK UNK, UNK
     Route: 065
     Dates: start: 20130729, end: 20130804
  5. RAMIPRIL. [Concomitant]
     Active Substance: RAMIPRIL
     Indication: EJECTION FRACTION DECREASED
     Dosage: 1.25 MG, UNK
     Route: 065
     Dates: start: 20140905, end: 20140926
  6. TRASTUZUMAB. [Suspect]
     Active Substance: TRASTUZUMAB
     Indication: BREAST CANCER
     Dosage: 8 MG/KG, TOTAL
     Route: 042
     Dates: start: 20130628, end: 20130628
  7. DEXAMETHASONE. [Concomitant]
     Active Substance: DEXAMETHASONE
     Dosage: UNK UNK, QD
     Route: 065
     Dates: start: 20130703, end: 20130710
  8. NASEPTIN [Concomitant]
     Active Substance: CHLORHEXIDINE HYDROCHLORIDE\NEOMYCIN SULFATE
     Dosage: UNK UNK, UNK
     Route: 061
     Dates: start: 20131108
  9. PERTUZUMAB. [Suspect]
     Active Substance: PERTUZUMAB
     Indication: BREAST CANCER
     Dosage: 840 MG, TOTAL (LOADING DOSE)
     Route: 042
     Dates: start: 20130627, end: 20130627
  10. AMITRIPTYLINE [Concomitant]
     Active Substance: AMITRIPTYLINE
     Dosage: UNK UNK, UNK
     Route: 065
     Dates: start: 20130628, end: 20130704
  11. DOCETAXEL. [Suspect]
     Active Substance: DOCETAXEL
     Dosage: UNK
     Route: 065
  12. DEXAMETHASONE. [Concomitant]
     Active Substance: DEXAMETHASONE
     Dosage: UNK UNK, QD
     Route: 065
     Dates: start: 20130809, end: 20130818
  13. PERTUZUMAB. [Suspect]
     Active Substance: PERTUZUMAB
     Dosage: 420 MG, Q3W (DATE OF LAST DOSE PRIOR TO EVENT 19/JUL/2013 (MAINTENANCE DOSE))
     Route: 042
     Dates: start: 20130719, end: 20130719
  14. AMOXICILLIN. [Concomitant]
     Active Substance: AMOXICILLIN
     Dosage: UNK UNK, UNK
     Route: 065
     Dates: start: 20130621, end: 20130628
  15. TRASTUZUMAB. [Suspect]
     Active Substance: TRASTUZUMAB
     Dosage: 6 MG/KG, Q3W (MAINTENANCE DOSE OF 354 MG)
     Route: 042
     Dates: start: 20130719, end: 20130719
  16. TRASTUZUMAB. [Suspect]
     Active Substance: TRASTUZUMAB
     Dosage: UNK, UNK
     Route: 065
  17. PERTUZUMAB. [Suspect]
     Active Substance: PERTUZUMAB
     Dosage: UNK, UNK
     Route: 065
  18. DEXAMETHASONE. [Concomitant]
     Active Substance: DEXAMETHASONE
     Dosage: 8 MG, QD
     Route: 065
     Dates: start: 20130627, end: 20130629
  19. DEXAMETHASONE. [Concomitant]
     Active Substance: DEXAMETHASONE
     Dosage: UNK UNK, QD
     Route: 065
     Dates: start: 20130711, end: 20130715
  20. DOCETAXEL. [Suspect]
     Active Substance: DOCETAXEL
     Dosage: 115 MG, Q3W
     Route: 042
     Dates: start: 20130719, end: 20130719

REACTIONS (1)
  - Lower respiratory tract infection [Recovered/Resolved]

NARRATIVE: CASE EVENT DATE: 20130727
